FAERS Safety Report 7949855-4 (Version None)
Quarter: 2011Q4

REPORT INFORMATION
  Report Type: 
  Country: None (occurrence: None)
  Receive Date: 20111123
  Receipt Date: 20111110
  Transmission Date: 20120403
  Serious: Yes (Death, Life-Threatening, Hospitalization)
  Sender: FDA-Public Use
  Company Number: 2009AL005879

PATIENT
  Age: 79 Year
  Sex: Male
  Weight: 68.0396 kg

DRUGS (37)
  1. NIASPAN [Concomitant]
  2. IPRATROPIUM BROMIDE [Concomitant]
  3. QUINIDEX [Concomitant]
  4. FOLIC ACID [Concomitant]
  5. SOTALOL HCL [Concomitant]
  6. TRENTAL [Concomitant]
  7. MEXITIL [Concomitant]
  8. BRONCHODILATORS [Concomitant]
  9. NITROGLYCERIN [Concomitant]
  10. PLETAL [Concomitant]
  11. SYNTHROID [Concomitant]
  12. LOVENOX [Concomitant]
  13. ASPIRIN [Concomitant]
  14. CILOSTAZOL [Concomitant]
  15. AZMACORT [Concomitant]
  16. IBERET [Concomitant]
  17. MEFOXIN [Concomitant]
  18. PACERONE [Concomitant]
  19. MECLIZINE [Concomitant]
  20. SOLU-MEDROL [Concomitant]
  21. SINGULAIR [Concomitant]
  22. VENTOLIN [Concomitant]
  23. HEPARIN [Concomitant]
  24. AMOXICILLIN [Concomitant]
  25. ALBUTEROL [Concomitant]
  26. RYTHMOL [Concomitant]
  27. HMG INHIBITOR [Concomitant]
  28. STRESS TAB [Concomitant]
  29. DIGOXIN [Suspect]
     Indication: SICK SINUS SYNDROME
     Dosage: 0.25 MG;QD;PO
     Route: 048
     Dates: start: 19940501
  30. LIPITOR [Concomitant]
  31. MDUR [Concomitant]
  32. AUGMENTIN [Concomitant]
  33. CECLOR [Concomitant]
  34. LIDOCAINE [Concomitant]
  35. PREDNISONE TAB [Concomitant]
  36. WARFARIN SODIUM [Concomitant]
  37. AMIODARONE HCL [Concomitant]

REACTIONS (55)
  - MUSCULOSKELETAL CHEST PAIN [None]
  - VERTIGO [None]
  - STAPHYLOCOCCAL INFECTION [None]
  - SICK SINUS SYNDROME [None]
  - DIZZINESS [None]
  - ASTHENIA [None]
  - BRONCHIAL HYPERREACTIVITY [None]
  - HYPERLIPIDAEMIA [None]
  - FALL [None]
  - ANGINA PECTORIS [None]
  - VOMITING [None]
  - PRESYNCOPE [None]
  - CHEST DISCOMFORT [None]
  - MITRAL VALVE INCOMPETENCE [None]
  - HYPOTENSION [None]
  - SPEECH DISORDER [None]
  - HYPERHIDROSIS [None]
  - LACUNAR INFARCTION [None]
  - CARDIAC ARREST [None]
  - VENTRICULAR ARRHYTHMIA [None]
  - PARAESTHESIA [None]
  - WHEEZING [None]
  - ABDOMINAL PAIN [None]
  - CHEST PAIN [None]
  - LEFT ATRIAL DILATATION [None]
  - BLOOD CULTURE POSITIVE [None]
  - BUNDLE BRANCH BLOCK RIGHT [None]
  - ELECTROCARDIOGRAM ST SEGMENT DEPRESSION [None]
  - INJURY [None]
  - VENTRICULAR EXTRASYSTOLES [None]
  - HYPERTENSION [None]
  - PYREXIA [None]
  - CORONARY ARTERY DISEASE [None]
  - MYOCARDIAL INFARCTION [None]
  - ANXIETY [None]
  - SINUS BRADYCARDIA [None]
  - ATRIAL FIBRILLATION [None]
  - COUGH [None]
  - LOSS OF CONSCIOUSNESS [None]
  - ECONOMIC PROBLEM [None]
  - HYPERCHOLESTEROLAEMIA [None]
  - MYOCARDIAL ISCHAEMIA [None]
  - TRANSIENT ISCHAEMIC ATTACK [None]
  - APHASIA [None]
  - MUSCULAR WEAKNESS [None]
  - FATIGUE [None]
  - EYE INJURY [None]
  - HYPERTHYROIDISM [None]
  - CHILLS [None]
  - PAIN IN EXTREMITY [None]
  - GAIT DISTURBANCE [None]
  - PULMONARY VALVE INCOMPETENCE [None]
  - MITRAL VALVE PROLAPSE [None]
  - NAUSEA [None]
  - DIARRHOEA [None]
